FAERS Safety Report 18622883 (Version 1)
Quarter: 2020Q4

REPORT INFORMATION
  Report Type: Spontaneous
  Country: US (occurrence: US)
  Receive Date: 20201216
  Receipt Date: 20201216
  Transmission Date: 20210114
  Serious: No
  Sender: FDA-Public Use
  Company Number: US-TAKEDA-2020TUS056835

PATIENT

DRUGS (1)
  1. CUVITRU [Suspect]
     Active Substance: HUMAN IMMUNOGLOBULIN G
     Indication: PRODUCT USED FOR UNKNOWN INDICATION
     Dosage: 6 GRAM
     Route: 058
     Dates: start: 20201204

REACTIONS (10)
  - Back pain [Unknown]
  - Pruritus [Unknown]
  - Nausea [Unknown]
  - Arthralgia [Unknown]
  - Erythema [Unknown]
  - Hypertension [Unknown]
  - Chills [Unknown]
  - Hypoaesthesia oral [Unknown]
  - Swelling [Unknown]
  - Diarrhoea [Unknown]
